FAERS Safety Report 6131796-9 (Version None)
Quarter: 2009Q1

REPORT INFORMATION
  Report Type: 
  Country: None (occurrence: None)
  Receive Date: 20090323
  Receipt Date: 20090309
  Transmission Date: 20090719
  Serious: Yes (Other)
  Sender: FDA-Public Use
  Company Number: ENTC2009-0020

PATIENT
  Age: 72 Year
  Sex: Female

DRUGS (6)
  1. STALEVO 100 [Suspect]
     Indication: PARKINSON'S DISEASE
     Dosage: 100/25/200 MG, 3 TABLETS ORAL
     Route: 048
     Dates: start: 20080724, end: 20080824
  2. MADOPAR [Concomitant]
  3. ASPIRIN [Concomitant]
  4. TRICORTIN [Concomitant]
  5. NICHOLIN [Concomitant]
  6. LEXOTAN [Concomitant]

REACTIONS (3)
  - HYPERHIDROSIS [None]
  - HYPOTENSION [None]
  - PRESYNCOPE [None]
